FAERS Safety Report 5324335-3 (Version None)
Quarter: 2007Q2

REPORT INFORMATION
  Report Type: 
  Country: None (occurrence: None)
  Receive Date: 20070514
  Receipt Date: 20070307
  Transmission Date: 20071010
  Serious: Yes (Hospitalization)
  Sender: FDA-Public Use
  Company Number: PL-ALLERGAN-0702236US

PATIENT
  Sex: Female

DRUGS (1)
  1. DYSPORT [Suspect]
     Indication: BLEPHAROSPASM
     Dosage: 125 UNITS, SINGLE
     Route: 030
     Dates: start: 20020726, end: 20020726

REACTIONS (1)
  - BOTULISM [None]
